FAERS Safety Report 18619104 (Version 3)
Quarter: 2021Q1

REPORT INFORMATION
  Report Type: Spontaneous
  Country: US (occurrence: US)
  Receive Date: 20201215
  Receipt Date: 20210111
  Transmission Date: 20210419
  Serious: No
  Sender: FDA-Public Use
  Company Number: US-009507513-2012USA002506

PATIENT
  Age: 18 Year
  Sex: Female
  Weight: 122.01 kg

DRUGS (2)
  1. NEXPLANON [Suspect]
     Active Substance: ETONOGESTREL
     Dosage: 1 IMPLANT
     Route: 059
     Dates: end: 20201123
  2. NEXPLANON [Suspect]
     Active Substance: ETONOGESTREL
     Indication: CONTRACEPTION
     Dosage: 1 IMPLANT
     Route: 059
     Dates: start: 20201123

REACTIONS (12)
  - Device placement issue [Not Recovered/Not Resolved]
  - Encapsulation reaction [Unknown]
  - Pain in extremity [Unknown]
  - Implant site scar [Unknown]
  - Hypoaesthesia [Recovered/Resolved]
  - Hypoaesthesia [Unknown]
  - Implant site pain [Recovered/Resolved]
  - Implant site fibrosis [Unknown]
  - Pain in extremity [Recovered/Resolved]
  - Device placement issue [Recovered/Resolved]
  - Device issue [Recovered/Resolved]
  - Complication of device removal [Recovered/Resolved]

NARRATIVE: CASE EVENT DATE: 2020
